FAERS Safety Report 12208557 (Version 1)
Quarter: 2016Q1

REPORT INFORMATION
  Report Type: Spontaneous
  Country: JP (occurrence: JP)
  Receive Date: 20160324
  Receipt Date: 20160324
  Transmission Date: 20160526
  Serious: Yes (Other)
  Sender: FDA-Public Use
  Company Number: JP-BAYER-2016-052637

PATIENT
  Age: 66 Year
  Sex: Male

DRUGS (3)
  1. CILOSTAZOL. [Interacting]
     Active Substance: CILOSTAZOL
     Route: 048
  2. WARFARIN [Interacting]
     Active Substance: WARFARIN
     Route: 048
  3. ACETYLSALICYLIC ACID({=100 MG) [Suspect]
     Active Substance: ASPIRIN
     Route: 048

REACTIONS (4)
  - Tumour ulceration [None]
  - Haematochezia [None]
  - Labelled drug-drug interaction medication error [None]
  - Ulcer haemorrhage [None]
